FAERS Safety Report 4831052-2 (Version None)
Quarter: 2005Q4

REPORT INFORMATION
  Report Type: 
  Country: None (occurrence: None)
  Receive Date: 20051115
  Receipt Date: 20051115
  Transmission Date: 20060501
  Serious: Yes (Hospitalization)
  Sender: FDA-Public Use
  Company Number: None

PATIENT
  Sex: Female
  Weight: 67.5 kg

DRUGS (3)
  1. OXALIPLATIN  85MG/M2 DAY 1 + 15 [Suspect]
     Indication: BREAST CANCER METASTATIC
     Dosage: 150MG IV
     Route: 042
     Dates: start: 20050613
  2. OXALIPLATIN  85MG/M2 DAY 1 + 15 [Suspect]
     Indication: BREAST CANCER METASTATIC
     Dosage: 150MG IV
     Route: 042
     Dates: start: 20050627
  3. CAPECITABINE 1500MG/M2 - BID DAYS 1-7 + 15-21 [Suspect]
     Dosage: 2650MG BID PO
     Route: 048
     Dates: start: 20050627, end: 20050703

REACTIONS (12)
  - ABDOMINAL DISTENSION [None]
  - ABDOMINAL PAIN [None]
  - ANAEMIA [None]
  - ANOREXIA [None]
  - DEHYDRATION [None]
  - DIARRHOEA [None]
  - ENTERITIS [None]
  - HYPOALBUMINAEMIA [None]
  - HYPOKALAEMIA [None]
  - HYPOPHOSPHATAEMIA [None]
  - NEUTROPENIA [None]
  - PALMAR-PLANTAR ERYTHRODYSAESTHESIA SYNDROME [None]
